FAERS Safety Report 19466613 (Version 1)
Quarter: 2021Q2

REPORT INFORMATION
  Report Type: Other
  Country: GB (occurrence: GB)
  Receive Date: 20210628
  Receipt Date: 20210628
  Transmission Date: 20210717
  Serious: Yes (Life-Threatening, Hospitalization, Disabling, Other)
  Sender: FDA-Public Use
  Company Number: GB-LUPIN PHARMACEUTICALS INC.-2021-10003

PATIENT
  Age: 19 Year
  Sex: Female
  Weight: 108 kg

DRUGS (2)
  1. SERTRALINE HYDROCHLORIDE TABLETS [Suspect]
     Active Substance: SERTRALINE HYDROCHLORIDE
     Indication: DEPRESSION
     Dosage: 15 DOSAGE FORM (OVERDOSE)
     Route: 048
     Dates: end: 20180219
  2. SERTRALINE HYDROCHLORIDE TABLETS [Suspect]
     Active Substance: SERTRALINE HYDROCHLORIDE
     Indication: ANXIETY
     Dosage: UNK
     Route: 048
     Dates: start: 201710

REACTIONS (8)
  - Paranoia [Recovered/Resolved with Sequelae]
  - Suicide attempt [Unknown]
  - Overdose [Unknown]
  - Abnormal dreams [Unknown]
  - Dissociation [Recovered/Resolved with Sequelae]
  - Yawning [Unknown]
  - Psychotic disorder [Recovered/Resolved with Sequelae]
  - Sexually inappropriate behaviour [Unknown]
